FAERS Safety Report 5726434-0 (Version None)
Quarter: 2008Q2

REPORT INFORMATION
  Report Type: 
  Country: None (occurrence: None)
  Receive Date: 20080502
  Receipt Date: 20080429
  Transmission Date: 20081010
  Serious: Yes (Other)
  Sender: FDA-Public Use
  Company Number: B0459546A

PATIENT
  Age: 36 Year
  Sex: Female

DRUGS (2)
  1. IMIGRAN [Suspect]
     Route: 048
     Dates: start: 20061222, end: 20070112
  2. CERAZETTE [Suspect]
     Indication: ORAL CONTRACEPTION
     Dosage: 76MCG PER DAY
     Route: 048
     Dates: end: 20070112

REACTIONS (4)
  - DRUG EXPOSURE DURING PREGNANCY [None]
  - LIVE BIRTH [None]
  - PREGNANCY ON ORAL CONTRACEPTIVE [None]
  - VOMITING [None]
